FAERS Safety Report 15364416 (Version 2)
Quarter: 2018Q4

REPORT INFORMATION
  Report Type: Spontaneous
  Country: FR (occurrence: FR)
  Receive Date: 20180909
  Receipt Date: 20180913
  Transmission Date: 20190204
  Serious: Yes (Hospitalization)
  Sender: FDA-Public Use
  Company Number: FR-BAXTER-2018BAX022086

PATIENT
  Sex: Female

DRUGS (40)
  1. PHENYLALANINE [Suspect]
     Active Substance: PHENYLALANINE
     Indication: PARENTERAL NUTRITION
     Route: 065
     Dates: start: 201610
  2. ASCORBIC ACID. [Suspect]
     Active Substance: ASCORBIC ACID
     Indication: PARENTERAL NUTRITION
     Route: 065
     Dates: start: 201610
  3. BIOTIN [Suspect]
     Active Substance: BIOTIN
     Indication: PARENTERAL NUTRITION
     Route: 065
     Dates: start: 201610
  4. METHIONINE [Suspect]
     Active Substance: METHIONINE
     Indication: PARENTERAL NUTRITION
     Route: 065
     Dates: start: 201610
  5. PYRIDOXINE HYDROCHLORIDE. [Suspect]
     Active Substance: PYRIDOXINE HYDROCHLORIDE
     Indication: PARENTERAL NUTRITION
     Route: 065
     Dates: start: 201610
  6. MAGNESIUM CHLORIDE. [Suspect]
     Active Substance: MAGNESIUM CHLORIDE
     Indication: PARENTERAL NUTRITION
     Dosage: 27 ML
     Route: 065
     Dates: start: 201610
  7. POTASSIUM CHLORIDE. [Suspect]
     Active Substance: POTASSIUM CHLORIDE
     Indication: PARENTERAL NUTRITION
     Route: 065
     Dates: start: 201610
  8. GLYCINE. [Suspect]
     Active Substance: GLYCINE
     Indication: PARENTERAL NUTRITION
     Route: 065
     Dates: start: 201610
  9. LEUCINE [Suspect]
     Active Substance: LEUCINE
     Indication: PARENTERAL NUTRITION
     Route: 065
     Dates: start: 201610
  10. NICOTINAMIDE [Suspect]
     Active Substance: NIACINAMIDE
     Indication: PARENTERAL NUTRITION
     Route: 065
     Dates: start: 201610
  11. VITAMIN K1 [Suspect]
     Active Substance: PHYTONADIONE
     Indication: PARENTERAL NUTRITION
     Route: 065
     Dates: start: 201610
  12. ISOLEUCINE [Suspect]
     Active Substance: ISOLEUCINE
     Indication: PARENTERAL NUTRITION
     Route: 065
     Dates: start: 201610
  13. VALINE [Suspect]
     Active Substance: VALINE
     Indication: PARENTERAL NUTRITION
     Route: 065
     Dates: start: 201610
  14. HISTIDINE [Suspect]
     Active Substance: HISTIDINE
     Indication: PARENTERAL NUTRITION
     Route: 065
     Dates: start: 201610
  15. TYROSINE [Suspect]
     Active Substance: TYROSINE
     Indication: PARENTERAL NUTRITION
     Route: 065
     Dates: start: 201610
  16. SERINE. [Suspect]
     Active Substance: SERINE
     Indication: PARENTERAL NUTRITION
     Route: 065
     Dates: start: 201610
  17. ORNITHINE HYDROCHLORIDE [Suspect]
     Active Substance: ORNITHINE HYDROCHLORIDE
     Indication: PARENTERAL NUTRITION
     Route: 065
     Dates: start: 201610
  18. SMOFLIPID [Suspect]
     Active Substance: FISH OIL\MEDIUM-CHAIN TRIGLYCERIDES\OLIVE OIL\SOYBEAN OIL
     Indication: PARENTERAL NUTRITION
     Route: 065
     Dates: start: 201610
  19. COLECALCIFEROL [Suspect]
     Active Substance: CHOLECALCIFEROL
     Indication: PARENTERAL NUTRITION
     Route: 065
     Dates: start: 201610
  20. DEXPANTHENOL. [Suspect]
     Active Substance: DEXPANTHENOL
     Indication: PARENTERAL NUTRITION
     Route: 065
     Dates: start: 201610
  21. CHLORURE DE SODIUM A 0,9 POUR CENT BAXTER, SOLUTION POUR PERFUSION EN [Suspect]
     Active Substance: SODIUM CHLORIDE
     Indication: PARENTERAL NUTRITION
     Route: 065
     Dates: start: 201610
  22. SODIUM LACTATE. [Suspect]
     Active Substance: SODIUM LACTATE
     Indication: PARENTERAL NUTRITION
     Route: 065
     Dates: start: 201610
  23. GLUCOSE-1-PHOSPHATE DISODIUM [Suspect]
     Active Substance: .ALPHA.-GLUCOSE-1-PHOSPHATE
     Indication: PARENTERAL NUTRITION
     Route: 065
     Dates: start: 201610
  24. LYSINE [Suspect]
     Active Substance: LYSINE
     Indication: PARENTERAL NUTRITION
     Route: 065
     Dates: start: 201610
  25. ARGININE [Suspect]
     Active Substance: ARGININE
     Indication: PARENTERAL NUTRITION
     Route: 065
     Dates: start: 201610
  26. CYSTEINE HYDROCHLORIDE. [Suspect]
     Active Substance: CYSTEINE HYDROCHLORIDE
     Indication: PARENTERAL NUTRITION
     Route: 065
     Dates: start: 201610
  27. THREONINE [Suspect]
     Active Substance: THREONINE
     Indication: PARENTERAL NUTRITION
     Route: 065
     Dates: start: 201610
  28. ALANINE [Suspect]
     Active Substance: ALANINE
     Indication: PARENTERAL NUTRITION
     Route: 065
     Dates: start: 201610
  29. L-CARNITINE [Suspect]
     Active Substance: LEVOCARNITINE
     Indication: PARENTERAL NUTRITION
     Route: 065
     Dates: start: 201610
  30. FOLIC ACID. [Suspect]
     Active Substance: FOLIC ACID
     Indication: PARENTERAL NUTRITION
     Route: 065
     Dates: start: 201610
  31. TRYPTOPHAN [Suspect]
     Active Substance: TRYPTOPHAN
     Indication: PARENTERAL NUTRITION
     Route: 065
     Dates: start: 201610
  32. GLUCOSE 5 % VIAFLO, SOLUTION POUR PERFUSION [Suspect]
     Active Substance: DEXTROSE
     Indication: PARENTERAL NUTRITION
     Route: 065
     Dates: start: 201610
  33. SELENIUM [Suspect]
     Active Substance: SELENIUM
     Indication: PARENTERAL NUTRITION
     Route: 065
     Dates: start: 201610
  34. PROLINE [Suspect]
     Active Substance: PROLINE
     Indication: PARENTERAL NUTRITION
     Route: 065
     Dates: start: 201610
  35. RETINOL PALMITATE [Suspect]
     Active Substance: VITAMIN A PALMITATE
     Indication: PARENTERAL NUTRITION
     Route: 065
     Dates: start: 201610
  36. GLUTAMIC ACID [Suspect]
     Active Substance: GLUTAMIC ACID
     Indication: PARENTERAL NUTRITION
     Route: 065
     Dates: start: 201610
  37. CYANOCOBALAMIN. [Suspect]
     Active Substance: CYANOCOBALAMIN
     Indication: PARENTERAL NUTRITION
     Route: 065
     Dates: start: 201610
  38. RIBOFLAVIN SODIUM PHOSPHATE [Suspect]
     Active Substance: RIBOFLAVIN 5^-PHOSPHATE SODIUM
     Indication: PARENTERAL NUTRITION
     Route: 065
     Dates: start: 201610
  39. VINTENE [Suspect]
     Active Substance: AMINO ACIDS
     Indication: PARENTERAL NUTRITION
     Route: 065
     Dates: start: 201610
  40. ASPARTIC ACID [Suspect]
     Active Substance: ASPARTIC ACID
     Indication: PARENTERAL NUTRITION
     Route: 065
     Dates: start: 201610

REACTIONS (4)
  - Thirst [Unknown]
  - Malaise [Unknown]
  - Intentional product use issue [Unknown]
  - Food craving [Unknown]

NARRATIVE: CASE EVENT DATE: 201807
